FAERS Safety Report 6956357-0 (Version None)
Quarter: 2010Q3

REPORT INFORMATION
  Report Type: 
  Country: None (occurrence: None)
  Receive Date: 20100830
  Receipt Date: 20100817
  Transmission Date: 20110219
  Serious: Yes (Hospitalization)
  Sender: FDA-Public Use
  Company Number: A0869818A

PATIENT
  Age: 61 Year
  Sex: Female

DRUGS (14)
  1. CARVEDILOL [Suspect]
     Indication: PRODUCT USED FOR UNKNOWN INDICATION
     Dosage: 25MG PER DAY
     Route: 065
     Dates: start: 20080101
  2. BLINDED STUDY MEDICATION [Suspect]
     Indication: PROPHYLAXIS
     Dosage: 2TAB PER DAY
     Route: 065
     Dates: start: 20090707
  3. DIOVAN [Concomitant]
     Dates: start: 20090408
  4. LEVOTHYROXINE [Concomitant]
     Dates: start: 19990101
  5. ABILIFY [Concomitant]
     Dates: start: 20090101
  6. HYDROCHLOROTHIAZIDE [Concomitant]
     Dates: start: 20090408
  7. ASPIRIN [Concomitant]
     Dates: start: 20080601
  8. LIPITOR [Concomitant]
     Dates: start: 20090422
  9. ADVAIR DISKUS 100/50 [Concomitant]
     Dates: start: 20090430
  10. FLUOXETINE [Concomitant]
     Dates: start: 19990101
  11. PLAVIX [Concomitant]
     Dates: start: 20081101
  12. NITROGLYCERIN [Concomitant]
  13. FUROSEMIDE [Concomitant]
  14. MOMETASONE FUROATE [Concomitant]

REACTIONS (4)
  - ATRIOVENTRICULAR BLOCK FIRST DEGREE [None]
  - DIZZINESS [None]
  - HEADACHE [None]
  - HYPOTENSION [None]
